FAERS Safety Report 5076680-7 (Version None)
Quarter: 2006Q3

REPORT INFORMATION
  Report Type: 
  Country: None (occurrence: None)
  Receive Date: 20060810
  Receipt Date: 20060530
  Transmission Date: 20061208
  Serious: Yes (Other)
  Sender: FDA-Public Use
  Company Number: US-ROCHE-450276

PATIENT
  Sex: Female
  Weight: 2.3 kg

DRUGS (1)
  1. ACCUTANE [Suspect]
     Indication: ACNE
     Dates: start: 19930515, end: 19930615

REACTIONS (6)
  - DRUG EXPOSURE BEFORE PREGNANCY [None]
  - FOETAL GROWTH RETARDATION [None]
  - FORCEPS DELIVERY [None]
  - NORMAL NEWBORN [None]
  - PLACENTA PRAEVIA [None]
  - UMBILICAL CORD AROUND NECK [None]
